FAERS Safety Report 5152897-8 (Version None)
Quarter: 2006Q4

REPORT INFORMATION
  Report Type: 
  Country: None (occurrence: None)
  Receive Date: 20061117
  Receipt Date: 20061108
  Transmission Date: 20070319
  Serious: Yes (Other)
  Sender: FDA-Public Use
  Company Number: US-JNJFOC-20061102487

PATIENT
  Sex: Male
  Weight: 63.96 kg

DRUGS (8)
  1. DURAGESIC-100 [Suspect]
     Indication: PAIN
     Route: 062
  2. AMITRIPTYLINE HCL [Concomitant]
     Indication: DEPRESSION
     Route: 048
  3. DILANTIN [Concomitant]
     Indication: CONVULSION
     Dosage: 2 AT AM  2 AT PM
     Route: 048
  4. PHENOBARBITAL TAB [Concomitant]
     Indication: CONVULSION
     Route: 048
  5. LORAZEPAM [Concomitant]
     Indication: ANXIETY
     Route: 048
  6. GABAPENTIN [Concomitant]
     Indication: PAIN
     Route: 048
  7. OXYCODONE HCL [Concomitant]
     Indication: PAIN
     Route: 048
  8. CATAPRES [Concomitant]
     Indication: BLOOD PRESSURE
     Route: 062

REACTIONS (3)
  - DEPRESSION [None]
  - DIVERTICULITIS [None]
  - DRUG INEFFECTIVE [None]
